FAERS Safety Report 10102635 (Version 2)
Quarter: 2014Q2

REPORT INFORMATION
  Report Type: Spontaneous
  Country: IE (occurrence: IE)
  Receive Date: 20140424
  Receipt Date: 20140424
  Transmission Date: 20141212
  Serious: Yes (Other)
  Sender: FDA-Public Use
  Company Number: IE-009507513-1401IRL007708

PATIENT
  Age: 12 Year
  Sex: Male

DRUGS (1)
  1. MK-7243 [Suspect]
     Dosage: 75000 SQ-T
     Route: 060
     Dates: start: 2011, end: 2011

REACTIONS (2)
  - Ulcerative keratitis [Recovered/Resolved]
  - Condition aggravated [Unknown]
